FAERS Safety Report 4825254-9 (Version None)
Quarter: 2005Q4

REPORT INFORMATION
  Report Type: 
  Country: None (occurrence: None)
  Receive Date: 20051109
  Receipt Date: 20051027
  Transmission Date: 20060501
  Serious: Yes (Other)
  Sender: FDA-Public Use
  Company Number: GBWYE093727OCT05

PATIENT
  Sex: Male

DRUGS (3)
  1. RAPAMUNE [Suspect]
     Dates: start: 20041215, end: 20050707
  2. GLUCORTICOSTEROIDS (GLUCORTICOSTEROIDS) [Concomitant]
  3. MYCOPHENOLATE MOFETIL (MYCOPHENOLATE MOFETIL) [Concomitant]

REACTIONS (1)
  - PNEUMONITIS [None]
